FAERS Safety Report 21556388 (Version 1)
Quarter: 2022Q4

REPORT INFORMATION
  Report Type: Spontaneous
  Country: US (occurrence: None)
  Receive Date: 20221104
  Receipt Date: 20221104
  Transmission Date: 20230113
  Serious: No
  Sender: FDA-Public Use
  Company Number: None

PATIENT
  Age: 12 Year
  Sex: Male
  Weight: 38.25 kg

DRUGS (1)
  1. HYDROCORTISONE [Suspect]
     Active Substance: HYDROCORTISONE
     Indication: Adrenal insufficiency
     Dosage: OTHER QUANTITY : 1 TABLET(S);?FREQUENCY : 3 TIMES A DAY;?
     Route: 048
     Dates: start: 20200701, end: 20220401

REACTIONS (8)
  - Product supply issue [None]
  - Product substitution issue [None]
  - Fatigue [None]
  - Decreased appetite [None]
  - Abdominal pain upper [None]
  - Headache [None]
  - 17-hydroxyprogesterone increased [None]
  - Therapeutic response changed [None]
